FAERS Safety Report 13074235 (Version 2)
Quarter: 2017Q1

REPORT INFORMATION
  Report Type: Spontaneous
  Country: US (occurrence: US)
  Receive Date: 20161230
  Receipt Date: 20170106
  Transmission Date: 20170428
  Serious: Yes (Other)
  Sender: FDA-Public Use
  Company Number: US-APOTEX-2016AP016191

PATIENT
  Sex: Female

DRUGS (4)
  1. LETROZOLE. [Suspect]
     Active Substance: LETROZOLE
     Indication: PRECOCIOUS PUBERTY
  2. LETROZOLE. [Suspect]
     Active Substance: LETROZOLE
     Indication: ALBRIGHT^S DISEASE
     Dosage: 2.5 MG, QD
     Route: 065
  3. LEUPROLIDE                         /00726901/ [Concomitant]
     Indication: PRECOCIOUS PUBERTY
  4. LEUPROLIDE                         /00726901/ [Concomitant]
     Indication: ALBRIGHT^S DISEASE
     Route: 065

REACTIONS (1)
  - Adnexal torsion [Unknown]
